FAERS Safety Report 6545666-5 (Version None)
Quarter: 2010Q1

REPORT INFORMATION
  Report Type: 
  Country: None (occurrence: None)
  Receive Date: 20100119
  Receipt Date: 20100104
  Transmission Date: 20100710
  Serious: Yes (Death, Hospitalization)
  Sender: FDA-Public Use
  Company Number: 2009AC000355

PATIENT
  Age: 79 Year
  Sex: Female

DRUGS (5)
  1. DIGOXIN [Suspect]
     Dosage: 0.125 MG;QD;PO
     Route: 047
  2. COREG [Concomitant]
  3. COUMADIN [Concomitant]
  4. DEMADEX [Concomitant]
  5. POTASSIUM CHLORIDE [Concomitant]

REACTIONS (13)
  - AORTIC STENOSIS [None]
  - ATRIAL FIBRILLATION [None]
  - CARDIAC FAILURE CONGESTIVE [None]
  - CONGESTIVE CARDIOMYOPATHY [None]
  - ECCHYMOSIS [None]
  - ECONOMIC PROBLEM [None]
  - MITRAL VALVE DISEASE MIXED [None]
  - MITRAL VALVE INCOMPETENCE [None]
  - MULTIPLE INJURIES [None]
  - MYOCARDIAL INFARCTION [None]
  - SURGERY [None]
  - TRICUSPID VALVE INCOMPETENCE [None]
  - WOUND [None]
